FAERS Safety Report 24306837 (Version 1)
Quarter: 2024Q3

REPORT INFORMATION
  Report Type: Spontaneous
  Country: BE (occurrence: BE)
  Receive Date: 20240911
  Receipt Date: 20240911
  Transmission Date: 20241017
  Serious: Yes (Hospitalization, Other)
  Sender: JOHNSON AND JOHNSON
  Company Number: BE-JNJFOC-20230819953

PATIENT
  Age: 4 Decade
  Sex: Female
  Weight: 48.2 kg

DRUGS (3)
  1. REMICADE [Suspect]
     Active Substance: INFLIXIMAB
     Indication: Crohn^s disease
     Route: 041
     Dates: start: 20230509, end: 2023
  2. MEDROL [Concomitant]
     Active Substance: METHYLPREDNISOLONE
  3. IMURAN [Concomitant]
     Active Substance: AZATHIOPRINE

REACTIONS (6)
  - Anastomotic ulcer [Unknown]
  - Arthralgia [Recovered/Resolved]
  - Myalgia [Unknown]
  - Malaise [Unknown]
  - Gastrointestinal wall thickening [Recovering/Resolving]
  - Type IV hypersensitivity reaction [Unknown]

NARRATIVE: CASE EVENT DATE: 20230501
